FAERS Safety Report 11847706 (Version 2)
Quarter: 2018Q2

REPORT INFORMATION
  Report Type: Spontaneous
  Country: US (occurrence: US)
  Receive Date: 20151217
  Receipt Date: 20180608
  Transmission Date: 20180711
  Serious: Yes (Hospitalization)
  Sender: FDA-Public Use
  Company Number: US-DSJP-DSU-2015-124166

PATIENT

DRUGS (4)
  1. BENICAR [Suspect]
     Active Substance: OLMESARTAN MEDOXOMIL
     Dosage: 20 MG, QD
  2. BENICAR HCT [Suspect]
     Active Substance: HYDROCHLOROTHIAZIDE\OLMESARTAN MEDOXOMIL
     Indication: HYPERTENSION
     Dosage: UNK
     Dates: start: 20070222, end: 20140710
  3. BENICAR [Suspect]
     Active Substance: OLMESARTAN MEDOXOMIL
     Indication: HYPERTENSION
     Dosage: 40 MG, QD
     Dates: start: 20070222, end: 20140710
  4. LIPITOR [Concomitant]
     Active Substance: ATORVASTATIN CALCIUM
     Indication: PRODUCT USED FOR UNKNOWN INDICATION
     Dosage: UNK

REACTIONS (19)
  - Coeliac disease [Unknown]
  - Umbilical hernia [Unknown]
  - Depression [Unknown]
  - Nephritis [Unknown]
  - Clostridium difficile colitis [Unknown]
  - Sprue-like enteropathy [Not Recovered/Not Resolved]
  - Visual impairment [Unknown]
  - Diverticulum [Unknown]
  - Gastrooesophageal reflux disease [Unknown]
  - Uveitis [Unknown]
  - Heart rate irregular [Unknown]
  - Cholelithiasis [Unknown]
  - Vision blurred [Not Recovered/Not Resolved]
  - Haemorrhoids [Unknown]
  - Renal cyst [Unknown]
  - Crohn^s disease [Unknown]
  - Calculus urinary [Unknown]
  - Hepatic steatosis [Unknown]
  - Anxiety [Unknown]

NARRATIVE: CASE EVENT DATE: 2007
